FAERS Safety Report 24804694 (Version 1)
Quarter: 2025Q1

REPORT INFORMATION
  Report Type: Spontaneous
  Country: US (occurrence: US)
  Receive Date: 20250103
  Receipt Date: 20250103
  Transmission Date: 20250409
  Serious: Yes (Hospitalization)
  Sender: SANOFI AVENTIS
  Company Number: US-SANOFI-02356941

PATIENT
  Sex: Male

DRUGS (1)
  1. LANTUS SOLOSTAR [Suspect]
     Active Substance: INSULIN GLARGINE
     Indication: Diabetes mellitus
     Dosage: 10 U, QD

REACTIONS (6)
  - Fall [Unknown]
  - Head injury [Unknown]
  - Hypoacusis [Unknown]
  - Blood glucose decreased [Unknown]
  - Dizziness [Unknown]
  - Device defective [Unknown]
